FAERS Safety Report 20486582 (Version 1)
Quarter: 2022Q1

REPORT INFORMATION
  Report Type: Spontaneous
  Country: US (occurrence: None)
  Receive Date: 20220217
  Receipt Date: 20220217
  Transmission Date: 20220423
  Serious: Yes (Hospitalization)
  Sender: FDA-Public Use
  Company Number: None

PATIENT
  Age: 17 Year
  Sex: Male
  Weight: 27 kg

DRUGS (1)
  1. ADAKVEO [Suspect]
     Active Substance: CRIZANLIZUMAB-TMCA
     Dates: start: 20220127, end: 20220127

REACTIONS (3)
  - Chest pain [None]
  - Agitation [None]
  - Infusion related reaction [None]

NARRATIVE: CASE EVENT DATE: 20220127
